FAERS Safety Report 10191659 (Version 1)
Quarter: 2014Q2

REPORT INFORMATION
  Report Type: Spontaneous
  Country: FR (occurrence: FR)
  Receive Date: 20140523
  Receipt Date: 20140523
  Transmission Date: 20141212
  Serious: Yes (Disabling)
  Sender: FDA-Public Use
  Company Number: FR-PFIZER INC-2014135496

PATIENT
  Age: 77 Year
  Sex: Male

DRUGS (5)
  1. SERETIDE [Concomitant]
     Dosage: 1 DF, 2X/DAY
     Route: 055
  2. VFEND [Suspect]
     Indication: BRONCHOPULMONARY ASPERGILLOSIS
     Dosage: 100 MG, 2X/DAY
     Route: 048
     Dates: start: 20131122, end: 20140102
  3. VFEND [Suspect]
     Dosage: 50 MG, 2X/DAY
     Route: 048
     Dates: start: 20140103, end: 20140311
  4. LAMALINE (FRANCE) [Concomitant]
     Dosage: 1 DF, 3X/DAY
     Route: 048
  5. OMIX [Concomitant]
     Dosage: 0.4 MG, 1X/DAY
     Route: 048

REACTIONS (2)
  - Maculopathy [Recovering/Resolving]
  - Visual impairment [Recovering/Resolving]
